FAERS Safety Report 9295010 (Version 1)
Quarter: 2013Q1

REPORT INFORMATION
  Report Type: Spontaneous
  Country: US (occurrence: None)
  Receive Date: 20121227
  Receipt Date: 20121227
  Transmission Date: 20140127
  Serious: No
  Sender: FDA-Public Use
  Company Number: PHEH2012US021387

PATIENT
  Age: 34 Year
  Sex: Male

DRUGS (4)
  1. AFINITOR [Suspect]
     Indication: TUBEROUS SCLEROSIS
     Route: 048
     Dates: start: 20120912
  2. PHENOBARBITAL (PHENOBARBITAL) [Concomitant]
  3. LEVETIRACETAM (LEVETIRACETAM) [Concomitant]
  4. TURBEROUS SCLEROSIS (TUBEROUS SCLEROSIS) [Concomitant]

REACTIONS (1)
  - Diarrhoea [None]
